FAERS Safety Report 23218049 (Version 1)
Quarter: 2023Q4

REPORT INFORMATION
  Report Type: Spontaneous
  Country: None (occurrence: US)
  Receive Date: 20231122
  Receipt Date: 20231122
  Transmission Date: 20240109
  Serious: No
  Sender: FDA-Public Use
  Company Number: US-Kindeva Drug Delivery L.P.-2148594

PATIENT
  Age: 50 Year
  Sex: Female

DRUGS (1)
  1. ALBUTEROL SULFATE [Suspect]
     Active Substance: ALBUTEROL SULFATE
     Indication: Lower respiratory tract congestion
     Route: 055
     Dates: start: 20231012

REACTIONS (3)
  - Device failure [Unknown]
  - Product dose omission issue [Unknown]
  - Cough [Unknown]
